FAERS Safety Report 4461246-X (Version None)
Quarter: 2004Q3

REPORT INFORMATION
  Report Type: 
  Country: None (occurrence: None)
  Receive Date: 20040928
  Receipt Date: 20040825
  Transmission Date: 20050211
  Serious: Yes (Other)
  Sender: FDA-Public Use
  Company Number: MX-ROCHE-380018

PATIENT
  Age: 5 Year
  Sex: Male

DRUGS (1)
  1. DOLAC [Suspect]
     Route: 042
     Dates: start: 20040317, end: 20040317

REACTIONS (2)
  - POST PROCEDURAL HAEMATOMA [None]
  - POST PROCEDURAL HAEMORRHAGE [None]
